FAERS Safety Report 19019241 (Version 2)
Quarter: 2021Q1

REPORT INFORMATION
  Report Type: Report from Study
  Country: GB (occurrence: GB)
  Receive Date: 20210317
  Receipt Date: 20210326
  Transmission Date: 20210420
  Serious: Yes (Other)
  Sender: FDA-Public Use
  Company Number: GB-MYLANLABS-2021M1014303

PATIENT
  Age: 65 Year
  Sex: Female

DRUGS (3)
  1. METHOTREXATE. [Suspect]
     Active Substance: METHOTREXATE
     Indication: PRODUCT USED FOR UNKNOWN INDICATION
     Dosage: UNKNOWN
     Route: 065
  2. IMRALDI [Suspect]
     Active Substance: ADALIMUMAB
     Indication: RHEUMATOID ARTHRITIS
     Dosage: 40 MILLIGRAM, Q2W
     Route: 058
     Dates: start: 20191119
  3. MELOXICAM. [Suspect]
     Active Substance: MELOXICAM
     Indication: PRODUCT USED FOR UNKNOWN INDICATION
     Dosage: UNKNOWN
     Route: 065

REACTIONS (9)
  - Depressed mood [Unknown]
  - Rheumatoid arthritis [Unknown]
  - Urinary tract infection [Not Recovered/Not Resolved]
  - Ligament rupture [Unknown]
  - Sleep disorder [Unknown]
  - Influenza like illness [Unknown]
  - Injection site pain [Unknown]
  - Headache [Unknown]
  - Ear infection [Not Recovered/Not Resolved]
